FAERS Safety Report 13727741 (Version 2)
Quarter: 2017Q4

REPORT INFORMATION
  Report Type: Spontaneous
  Country: US (occurrence: US)
  Receive Date: 20170707
  Receipt Date: 20171123
  Transmission Date: 20180320
  Serious: Yes (Hospitalization)
  Sender: FDA-Public Use
  Company Number: US-SUN PHARMACEUTICAL INDUSTRIES LTD-2017US-144742

PATIENT
  Age: 22 Year
  Sex: Female

DRUGS (1)
  1. ACETAMINOPHEN. [Suspect]
     Active Substance: ACETAMINOPHEN
     Indication: TOOTHACHE
     Dosage: 6 G, DAILY
     Route: 048

REACTIONS (5)
  - Maternal exposure during pregnancy [Unknown]
  - Acute hepatic failure [Recovered/Resolved]
  - Self-medication [Recovered/Resolved]
  - Accidental overdose [Recovered/Resolved]
  - Hepatic encephalopathy [Recovered/Resolved]
